FAERS Safety Report 7001402-X (Version None)
Quarter: 2010Q3

REPORT INFORMATION
  Report Type: 
  Country: None (occurrence: None)
  Receive Date: 20100920
  Receipt Date: 20100112
  Transmission Date: 20110219
  Serious: Yes (Hospitalization)
  Sender: FDA-Public Use
  Company Number: US-ASTRAZENECA-2009UW20581

PATIENT
  Age: 44 Year
  Sex: Female
  Weight: 88.9 kg

DRUGS (4)
  1. SEROQUEL [Suspect]
     Indication: BIPOLAR DISORDER
     Route: 048
     Dates: start: 20071107, end: 20090101
  2. CYMBALTA [Concomitant]
     Indication: DEPRESSION
     Dates: start: 20070101
  3. CRESTER [Concomitant]
     Dates: start: 20070101
  4. TRICOR [Concomitant]
     Dates: start: 20070101

REACTIONS (6)
  - BLOOD CHOLESTEROL INCREASED [None]
  - BLOOD TRIGLYCERIDES INCREASED [None]
  - HYPERLIPIDAEMIA [None]
  - PNEUMONIA [None]
  - TYPE 2 DIABETES MELLITUS [None]
  - WEIGHT INCREASED [None]
